FAERS Safety Report 18188293 (Version 1)
Quarter: 2020Q3

REPORT INFORMATION
  Report Type: Spontaneous
  Country: DE (occurrence: DE)
  Receive Date: 20200824
  Receipt Date: 20200824
  Transmission Date: 20201103
  Serious: Yes (Hospitalization)
  Sender: FDA-Public Use
  Company Number: DE-TEVA-2020-DE-1817115

PATIENT
  Age: 85 Year
  Sex: Female
  Weight: 53.6 kg

DRUGS (16)
  1. METAMIZOL [Concomitant]
     Active Substance: METAMIZOLE SODIUM
     Dosage: 1500 MILLIGRAM DAILY;  1?1?1?0
  2. MACROGOL ABZ BALANCE [Concomitant]
     Dosage: REQUIREMENT
  3. KORODIN HERZ?KREISLAUF [Concomitant]
     Dosage: REQUIREMENT
  4. COLECALCIFEROL (VITAMIN D) [Concomitant]
     Dosage: 2857.1429 IU (INTERNATIONAL UNIT) DAILY; 20,000 IU, ONCE A WEEK
  5. FENTANYL. [Concomitant]
     Active Substance: FENTANYL
     Dosage: 25 YG / H, CHANGE EVERY 3 DAYS
  6. PREDNISOLON [Suspect]
     Active Substance: PREDNISOLONE
     Dosage: 2 DOSAGE FORMS DAILY; 5 MG, 2?0?0?0
     Route: 065
  7. HUMALOG MIX 25/75 KWIKPEN 300E. 100E./ML [Concomitant]
     Dosage: 25|75 E/ML, 16?0?8?0
  8. PANTOPRAZOL [Suspect]
     Active Substance: PANTOPRAZOLE SODIUM
     Dosage: 20 MILLIGRAM DAILY; 1?0?0?0
     Route: 065
  9. MIRTAZAPIN [Suspect]
     Active Substance: MIRTAZAPINE
     Dosage: .5 DOSAGE FORMS DAILY; 15 MG, 0?0?0?0.5
     Route: 065
  10. KALINOR?RETARD P 600MG [Concomitant]
     Dosage: 1200 MILLIGRAM DAILY;  1?0?1?0
  11. TORASEMID [Concomitant]
     Active Substance: TORSEMIDE
     Dosage: 2 DOSAGE FORMS DAILY; 10 MG, 2?0?0?0
  12. SITAGLIPTIN [Concomitant]
     Active Substance: SITAGLIPTIN
     Dosage: 25 MILLIGRAM DAILY; 1?0?0?0
  13. APIXABAN [Concomitant]
     Active Substance: APIXABAN
     Dosage: 5 MILLIGRAM DAILY;  1?0?1?0
  14. DIMENHYDRINATE. [Concomitant]
     Active Substance: DIMENHYDRINATE
     Dosage: 50 MG, AS NEEDED
  15. RAMIPRIL. [Concomitant]
     Active Substance: RAMIPRIL
     Dosage: .5 DOSAGE FORMS DAILY; 2.5 MG, 0.5?0?0?0
  16. METOPROLOL. [Concomitant]
     Active Substance: METOPROLOL
     Dosage: .5 DOSAGE FORMS DAILY; 47.5 MG, 0.5?0?0?0,

REACTIONS (1)
  - Musculoskeletal pain [Recovering/Resolving]

NARRATIVE: CASE EVENT DATE: 20200220
